FAERS Safety Report 21641821 (Version 1)
Quarter: 2022Q4

REPORT INFORMATION
  Report Type: Spontaneous
  Country: PL (occurrence: PL)
  Receive Date: 20221125
  Receipt Date: 20221125
  Transmission Date: 20230113
  Serious: No
  Sender: FDA-Public Use
  Company Number: PL-ALKEM LABORATORIES LIMITED-PL-ALKEM-2022-03179

PATIENT
  Age: 35 Year
  Sex: Female

DRUGS (8)
  1. METFORMIN HYDROCHLORIDE [Suspect]
     Active Substance: METFORMIN HYDROCHLORIDE
     Indication: Polycystic ovaries
     Dosage: 500-1500 MG
     Route: 048
  2. METFORMIN HYDROCHLORIDE [Suspect]
     Active Substance: METFORMIN HYDROCHLORIDE
     Indication: Autoimmune thyroiditis
  3. ASPIRIN [Suspect]
     Active Substance: ASPIRIN
     Indication: Polycystic ovaries
     Dosage: 75-150 MG
     Route: 048
  4. ASPIRIN [Suspect]
     Active Substance: ASPIRIN
     Indication: Autoimmune thyroiditis
  5. ENOXAPARIN [Suspect]
     Active Substance: ENOXAPARIN
     Indication: Polycystic ovaries
     Dosage: 40 MILLIGRAM
     Route: 058
  6. ENOXAPARIN [Suspect]
     Active Substance: ENOXAPARIN
     Indication: Autoimmune thyroiditis
  7. INOSITOL [Suspect]
     Active Substance: INOSITOL
     Indication: Polycystic ovaries
     Dosage: 1000-2000 MG
     Route: 048
  8. INOSITOL [Suspect]
     Active Substance: INOSITOL
     Indication: Autoimmune thyroiditis

REACTIONS (1)
  - Exposure during pregnancy [Unknown]
